FAERS Safety Report 12617094 (Version 3)
Quarter: 2016Q3

REPORT INFORMATION
  Report Type: Spontaneous
  Country: US (occurrence: US)
  Receive Date: 20160803
  Receipt Date: 20160808
  Transmission Date: 20161109
  Serious: No
  Sender: FDA-Public Use
  Company Number: US-BEH-2016058757

PATIENT
  Age: 65 Year
  Sex: Female
  Weight: 86 kg

DRUGS (23)
  1. HIZENTRA [Suspect]
     Active Substance: HUMAN IMMUNOGLOBULIN G
     Route: 058
     Dates: start: 20130202
  2. L-M-X [Concomitant]
  3. FOLIC ACID. [Concomitant]
     Active Substance: FOLIC ACID
  4. ARMOUR THYROID [Concomitant]
     Active Substance: THYROID, PORCINE
  5. SALJET SALINE RINSE [Concomitant]
     Dosage: SALJET SALNIE RINSE 0.9 VIAL
  6. NASONEX [Concomitant]
     Active Substance: MOMETASONE FUROATE
     Dosage: NASONEX 50 MCG SPRAY/PUMP
  7. LOSARTAN REPORTED AS LOSARTAN HCTZ [Concomitant]
     Dosage: 100-25 MG TAB
  8. TRAMADOL REPORTED AS TRAMADOL  HCL [Concomitant]
  9. CLOBETASOL PROP [Concomitant]
     Dosage: FOAM
  10. GABAPENTIN. [Concomitant]
     Active Substance: GABAPENTIN
  11. LANTUS [Concomitant]
     Active Substance: INSULIN GLARGINE
     Dosage: VIAL
  12. METFORMIN REPORTED AS METFORMIN HCL [Concomitant]
  13. CLOBETASOL [Concomitant]
     Active Substance: CLOBETASOL
  14. PULMICORT TURBUHALER [Concomitant]
     Active Substance: BUDESONIDE
     Dosage: 0.25 MG/2ML AMPUL-NEB
  15. TYLENOL EX-STR [Concomitant]
  16. XOPENEX [Concomitant]
     Active Substance: LEVALBUTEROL HYDROCHLORIDE
     Dosage: 0.31 MG/ML SOLUTION
  17. AZELASTINE HCL [Concomitant]
     Active Substance: AZELASTINE HYDROCHLORIDE
     Dosage: AZELASTINE HCL 0.05 % DROPS
  18. FUROSEMIDE. [Concomitant]
     Active Substance: FUROSEMIDE
  19. AUGMENTIN [Concomitant]
     Active Substance: AMOXICILLIN\CLAVULANATE POTASSIUM
     Dosage: 500-125 MG TABLET
  20. ADULT LOW FLOW ASA EC [Concomitant]
  21. DIPHENHYDRAMINE. [Concomitant]
     Active Substance: DIPHENHYDRAMINE
  22. EPIPEN [Concomitant]
     Active Substance: EPINEPHRINE
     Dosage: AUTOINJECTOR
  23. NORVASC [Concomitant]
     Active Substance: AMLODIPINE BESYLATE

REACTIONS (1)
  - Sinusitis [Unknown]

NARRATIVE: CASE EVENT DATE: 201512
